FAERS Safety Report 22660303 (Version 1)
Quarter: 2023Q2

REPORT INFORMATION
  Report Type: Spontaneous
  Country: IT (occurrence: IT)
  Receive Date: 20230630
  Receipt Date: 20230630
  Transmission Date: 20230722
  Serious: No
  Sender: FDA-Public Use
  Company Number: IT-JAZZ PHARMACEUTICALS-2023-IT-012773

PATIENT
  Age: 7 Year

DRUGS (1)
  1. EPIDIOLEX [Suspect]
     Active Substance: CANNABIDIOL
     Indication: Lennox-Gastaut syndrome
     Dosage: 15 MILLIGRAM/KILOGRAM/DAY

REACTIONS (1)
  - Somnolence [Unknown]
